FAERS Safety Report 9502429 (Version 2)
Quarter: 2013Q3

REPORT INFORMATION
  Report Type: Report from Study
  Country: US (occurrence: US)
  Receive Date: 20130906
  Receipt Date: 20130909
  Transmission Date: 20140515
  Serious: Yes (Hospitalization, Other)
  Sender: FDA-Public Use
  Company Number: US-ROCHE-1270995

PATIENT
  Sex: Female
  Weight: 53.12 kg

DRUGS (14)
  1. PULMOZYME [Suspect]
     Indication: CYSTIC FIBROSIS
     Route: 055
  2. PULMOZYME [Suspect]
     Route: 055
  3. CREON 24 [Concomitant]
     Dosage: 2-3 CAPSULES WITH MEALS, 1 CAPSULE WITH EACH SNACK
     Route: 065
  4. ALBUTEROL [Concomitant]
     Indication: CYSTIC FIBROSIS
     Route: 055
  5. FLUOXETINE [Concomitant]
     Route: 048
  6. HUMALOG [Concomitant]
     Dosage: 100 UNIT/ML
     Route: 058
  7. NPH INSULIN [Concomitant]
     Dosage: 10 UNITS
     Route: 058
  8. MOMETASONE [Concomitant]
     Dosage: 50 MCG/ACT
     Route: 045
  9. MONTELUKAST [Concomitant]
     Route: 048
  10. AQUADEKS [Concomitant]
     Dosage: 3 CAPSULES
     Route: 048
  11. PANTOPRAZOLE [Concomitant]
     Route: 048
  12. POLYETHYLENE GLYCOL [Concomitant]
     Route: 048
  13. URSODIOL [Concomitant]
     Route: 048
  14. ZOLPIDEM [Concomitant]
     Dosage: H.S. PRN
     Route: 048

REACTIONS (2)
  - Haemoptysis [Unknown]
  - Haemoptysis [Recovered/Resolved]
